FAERS Safety Report 8272177-1 (Version None)
Quarter: 2012Q2

REPORT INFORMATION
  Report Type: 
  Country: None (occurrence: None)
  Receive Date: 20120410
  Receipt Date: 20120330
  Transmission Date: 20120825
  Serious: Yes (Other)
  Sender: FDA-Public Use
  Company Number: US-ASTRAZENECA-2011SE40884

PATIENT
  Age: 36 Year
  Sex: Female

DRUGS (10)
  1. MICROGESTIN FE 1/20 [Concomitant]
     Indication: ORAL CONTRACEPTION
     Dosage: UNKNOWN DOSE, DAILY
     Route: 048
  2. CALCIUM CARBONATE [Concomitant]
     Indication: HYPOCALCAEMIA
     Dosage: 500/20 0 D-3, DAILY
     Route: 048
  3. PHOSLO [Concomitant]
     Indication: HYPOPHOSPHATAEMIA
     Route: 048
  4. VANDETANIB [Suspect]
     Route: 048
     Dates: start: 20120203
  5. SYNTHROID [Concomitant]
     Indication: HYPOTHYROIDISM
     Route: 048
  6. HYDROCORTISONE [Concomitant]
     Indication: ADRENAL INSUFFICIENCY
     Route: 048
  7. CALCIUM CARBONATE [Concomitant]
     Dosage: 1 TABLET TWO TIMES A DAY
     Route: 048
  8. VANDETANIB [Suspect]
     Indication: THYROID CANCER
     Route: 048
     Dates: start: 20110630, end: 20120123
  9. VANDETANIB [Suspect]
     Route: 048
     Dates: start: 20120309
  10. CALCITRIOL [Concomitant]
     Indication: HYPOPARATHYROIDISM
     Route: 048

REACTIONS (6)
  - PALPITATIONS [None]
  - DIARRHOEA [None]
  - VOMITING [None]
  - ELECTROCARDIOGRAM QT PROLONGED [None]
  - ABDOMINAL DISCOMFORT [None]
  - CHEST DISCOMFORT [None]
